FAERS Safety Report 10069819 (Version 7)
Quarter: 2014Q2

REPORT INFORMATION
  Report Type: Spontaneous
  Country: US (occurrence: US)
  Receive Date: 20140410
  Receipt Date: 20140618
  Transmission Date: 20141212
  Serious: No
  Sender: FDA-Public Use
  Company Number: US-PFIZER INC-2014099448

PATIENT
  Age: 47 Year
  Sex: Male
  Weight: 54.42 kg

DRUGS (8)
  1. PHENYTOIN [Suspect]
     Indication: EPILEPSY
     Dosage: 50 MG, DAILY
     Route: 048
     Dates: start: 20130925
  2. PHENYTOIN [Suspect]
  3. DILANTIN [Suspect]
     Dosage: 100 MG, UNK
     Route: 048
  4. DILANTIN [Suspect]
     Indication: CONVULSION
     Dosage: 100 MG, 1X/DAY
     Route: 048
     Dates: start: 20130925
  5. DEPAKOTE [Suspect]
     Indication: EPILEPSY
     Dosage: 500 MG, UNK
  6. LAMICTAL [Suspect]
     Dosage: 100 MG, UNK
  7. PHENYTOIN [Concomitant]
     Indication: EPILEPSY
     Dosage: 100 MG, 3X/DAY
  8. CLONAZEPAM [Concomitant]
     Indication: PAIN
     Dosage: UNK

REACTIONS (8)
  - Intentional product misuse [Unknown]
  - Product solubility abnormal [Unknown]
  - Product physical issue [Unknown]
  - Pruritus [Not Recovered/Not Resolved]
  - Weight decreased [Not Recovered/Not Resolved]
  - Vomiting [Unknown]
  - Nausea [Unknown]
  - Blood potassium abnormal [Not Recovered/Not Resolved]
